FAERS Safety Report 7750668 (Version 3)
Quarter: 2014Q1

REPORT INFORMATION
  Report Type: Report from Study
  Country: US (occurrence: US)
  Receive Date: 20110106
  Receipt Date: 20140102
  Transmission Date: 20141002
  Serious: Yes (Hospitalization, Other)
  Sender: FDA-Public Use
  Company Number: US-CELGENEUS-163-21880-10120711

PATIENT
  Age: 65 Year
  Sex: Female
  Weight: 97 kg

DRUGS (22)
  1. REVLIMID [Suspect]
     Indication: AMYLOIDOSIS
     Dosage: 10 MILLIGRAM
     Route: 048
     Dates: start: 20100909, end: 20101203
  2. REVLIMID [Suspect]
     Dosage: 10 MILLIGRAM
     Route: 048
     Dates: start: 20101209
  3. MELPHALAN [Suspect]
     Indication: AMYLOIDOSIS
     Dosage: 12 MILLIGRAM
     Route: 065
     Dates: start: 20100909, end: 20101203
  4. MELPHALAN [Suspect]
     Dosage: 12 MILLIGRAM
     Route: 065
     Dates: start: 20101210
  5. MELPHALAN [Suspect]
     Dosage: .18 MILLIGRAM/KILOGRAM
     Route: 048
  6. DEXAMETHASONE [Suspect]
     Indication: AMYLOIDOSIS
     Dosage: 40 MILLIGRAM
     Route: 065
     Dates: start: 20100909, end: 20101203
  7. DEXAMETHASONE [Suspect]
     Dosage: 40 MILLIGRAM
     Route: 065
     Dates: start: 20101210
  8. COREG [Concomitant]
     Indication: PROPHYLAXIS
     Dosage: 12.5 MILLIGRAM
     Route: 065
     Dates: end: 20101202
  9. METFORMIN [Concomitant]
     Indication: DIABETES MELLITUS
     Dosage: 1000 MILLIGRAM
     Route: 065
  10. BENICAR [Concomitant]
     Indication: BLOOD PRESSURE
     Dosage: 20 MILLIGRAM
     Route: 065
     Dates: end: 20101206
  11. LIPITOR [Concomitant]
     Indication: BLOOD CHOLESTEROL
     Dosage: 10 MILLIGRAM
     Route: 065
  12. LASIX [Concomitant]
     Indication: PROPHYLAXIS
     Dosage: 20-40MG
     Route: 065
  13. FLUCONAZOLE [Concomitant]
     Indication: PROPHYLAXIS
     Dosage: 200 MILLIGRAM
     Route: 065
     Dates: end: 20101202
  14. ALBUTEROL [Concomitant]
     Indication: ASTHMA
     Route: 055
  15. SYMBICORT [Concomitant]
     Indication: ASTHMA
     Route: 055
  16. SYNTHROID [Concomitant]
     Indication: HYPOTHYROIDISM
     Dosage: 175 MILLIGRAM
     Route: 065
  17. ASPIRIN [Concomitant]
     Indication: ANALGESIC THERAPY
     Dosage: 81 MILLIGRAM
     Route: 065
  18. VITAMIIN B-6 [Concomitant]
     Indication: SUPPLEMENTATION THERAPY
     Dosage: 100 MILLIGRAM
     Route: 065
  19. LEXAPRO [Concomitant]
     Indication: DEPRESSION
     Dosage: 10 MILLIGRAM
     Route: 065
  20. INH/ISONIAZID [Concomitant]
     Indication: PROPHYLAXIS
     Dosage: 300 MILLIGRAM
     Route: 065
  21. POTASSIUM CHLORIDE [Concomitant]
     Indication: SUPPLEMENTATION THERAPY
     Dosage: 20 MICROGRAM
     Route: 065
  22. JANUVIA [Concomitant]
     Indication: HYPERTENSION
     Dosage: 100 MICROGRAM
     Route: 065
     Dates: start: 20101103

REACTIONS (2)
  - Atrial thrombosis [Recovered/Resolved]
  - Atrial fibrillation [Recovered/Resolved]
